FAERS Safety Report 16992592 (Version 1)
Quarter: 2019Q4

REPORT INFORMATION
  Report Type: Spontaneous
  Country: US (occurrence: US)
  Receive Date: 20191104
  Receipt Date: 20191104
  Transmission Date: 20200122
  Serious: Yes (Disabling)
  Sender: FDA-Public Use
  Company Number: None

PATIENT
  Age: 45 Year
  Sex: Female
  Weight: 69.75 kg

DRUGS (7)
  1. FLONASE [Concomitant]
     Active Substance: FLUTICASONE PROPIONATE
  2. GLUTATHIONE [Concomitant]
     Active Substance: GLUTATHIONE
  3. MILK THISTLE [Concomitant]
     Active Substance: DIETARY SUPPLEMENT\HERBALS\MILK THISTLE
  4. MONTELUKAST [Suspect]
     Active Substance: MONTELUKAST SODIUM
     Indication: HYPERSENSITIVITY
     Dosage: ?          QUANTITY:1 TABLET(S);?
     Route: 048
     Dates: start: 20190910, end: 20191007
  5. VITAMIN C [Concomitant]
     Active Substance: ASCORBIC ACID
  6. ZYRTEC [Concomitant]
     Active Substance: CETIRIZINE HYDROCHLORIDE
  7. NIACINAMIDE [Concomitant]
     Active Substance: NIACINAMIDE

REACTIONS (4)
  - Insomnia [None]
  - Depression [None]
  - Feeling abnormal [None]
  - Feeling jittery [None]

NARRATIVE: CASE EVENT DATE: 20191015
